FAERS Safety Report 5280191-3 (Version None)
Quarter: 2007Q1

REPORT INFORMATION
  Report Type: 
  Country: None (occurrence: None)
  Receive Date: 20070326
  Receipt Date: 20070326
  Transmission Date: 20070707
  Serious: Yes (Hospitalization)
  Sender: FDA-Public Use
  Company Number: None

PATIENT
  Age: 66 Year
  Sex: Female
  Weight: 77 kg

DRUGS (2)
  1. CETUXIMAB [Suspect]
     Indication: NON-SMALL CELL LUNG CANCER
     Dosage: 250MG/M2 WEEKLY IV
     Route: 042
     Dates: start: 20070227, end: 20070305
  2. VINFLUNINE [Suspect]
     Indication: NON-SMALL CELL LUNG CANCER
     Dosage: 320MG/M2 Q3WK IV
     Route: 042
     Dates: start: 20070227

REACTIONS (9)
  - BLOOD SODIUM DECREASED [None]
  - CONSTIPATION [None]
  - DECREASED APPETITE [None]
  - DISORIENTATION [None]
  - DIZZINESS [None]
  - FATIGUE [None]
  - HUNGER [None]
  - ORTHOSTATIC HYPOTENSION [None]
  - SYNCOPE [None]
